FAERS Safety Report 12570490 (Version 1)
Quarter: 2016Q3

REPORT INFORMATION
  Report Type: Report from Study
  Country: US (occurrence: US)
  Receive Date: 20160719
  Receipt Date: 20160719
  Transmission Date: 20161109
  Serious: Yes (Other)
  Sender: FDA-Public Use
  Company Number: US-BIOGEN-2016BI00253657

PATIENT
  Sex: Female

DRUGS (1)
  1. TECFIDERA [Suspect]
     Active Substance: DIMETHYL FUMARATE
     Indication: MULTIPLE SCLEROSIS
     Route: 048
     Dates: start: 20140630

REACTIONS (4)
  - Fall [Recovered/Resolved]
  - Knee arthroplasty [Unknown]
  - Femur fracture [Not Recovered/Not Resolved]
  - Ligament sprain [Not Recovered/Not Resolved]
